FAERS Safety Report 9782007 (Version 1)
Quarter: 2013Q4

REPORT INFORMATION
  Report Type: Spontaneous
  Country: US (occurrence: US)
  Receive Date: 20131225
  Receipt Date: 20131225
  Transmission Date: 20140711
  Serious: No
  Sender: FDA-Public Use
  Company Number: US-009507513-1312USA006777

PATIENT
  Age: 17 Year
  Sex: Female
  Weight: 71.2 kg

DRUGS (1)
  1. NEXPLANON [Suspect]
     Indication: CONTRACEPTION
     Dosage: 1 ROD/THREE YEARS
     Route: 059
     Dates: start: 20130710, end: 20131212

REACTIONS (5)
  - Malaise [Unknown]
  - Feeling abnormal [Unknown]
  - Device kink [Recovered/Resolved]
  - Device breakage [Recovered/Resolved]
  - Nausea [Unknown]
